FAERS Safety Report 25618981 (Version 1)
Quarter: 2025Q3

REPORT INFORMATION
  Report Type: Spontaneous
  Country: US (occurrence: US)
  Receive Date: 20250729
  Receipt Date: 20250729
  Transmission Date: 20251020
  Serious: Yes (Other)
  Sender: FRESENIUS KABI
  Company Number: US-FreseniusKabi-FK202510450

PATIENT
  Age: 34 Year
  Sex: Female

DRUGS (1)
  1. ADALIMUMAB [Suspect]
     Active Substance: ADALIMUMAB
     Indication: Psoriasis

REACTIONS (3)
  - Lupus-like syndrome [Recovered/Resolved]
  - Major depression [Recovered/Resolved]
  - Self-injurious ideation [Recovered/Resolved]
